FAERS Safety Report 8921142 (Version 1)
Quarter: 2012Q4

REPORT INFORMATION
  Report Type: 
  Country: US (occurrence: US)
  Receive Date: 20121123
  Receipt Date: 20121123
  Transmission Date: 20130627
  Serious: Yes (Hospitalization, Other)
  Sender: FDA-Public Use
  Company Number: US-ACCORD-015346

PATIENT
  Age: 14 Year
  Sex: Male

DRUGS (8)
  1. FAMOTIDINE [Concomitant]
  2. FERROUS SULFATE [Concomitant]
  3. MULTIVITAMIN [Concomitant]
  4. TRIMETHOPRIM SULFAMETHOXAZOLE [Concomitant]
     Indication: PNEUMOCYSTIS CARINII PROPHYLAXIS
  5. OMEPRAZOLE [Concomitant]
  6. DARBEPOETIN ALFA [Concomitant]
  7. MYCOPHENOLATE MOFETIL [Suspect]
     Indication: WEGENERS GRANULOMATOSIS
     Dosage: but the dose had been gradually
increased from 500 mg orally every morning and 250 mg
every evenin
  8. LOSARTAN [Concomitant]

REACTIONS (4)
  - Enterocolitis [Recovering/Resolving]
  - Weight decreased [Recovering/Resolving]
  - Failure to thrive [Recovering/Resolving]
  - Off label use [Unknown]
